FAERS Safety Report 7892663-3 (Version None)
Quarter: 2011Q4

REPORT INFORMATION
  Report Type: 
  Country: None (occurrence: None)
  Receive Date: 20111102
  Receipt Date: 20111017
  Transmission Date: 20120403
  Serious: Yes (Other)
  Sender: FDA-Public Use
  Company Number: 1000024962

PATIENT
  Age: 82 Month
  Sex: Male
  Weight: 72 kg

DRUGS (9)
  1. OXYGEN (OXYGEN) (OXYGEN) [Concomitant]
  2. RAMIPRIL (RAMIPRIL)(5 MILLIGRAM)(RAMIPRIL) [Concomitant]
  3. HCT (HYDROCHLOROTHIAZIDE) (25 MILLIGRAM) (HYDROCHLOROTHIAZIDE) [Concomitant]
  4. ROFLUMILAST (ROFLUMILAST) (TABLETS) [Suspect]
     Indication: CHRONIC OBSTRUCTIVE PULMONARY DISEASE
     Dosage: 500 MCG (500 MCG, 1 IN 1 D),ORAL
     Dates: start: 20110110, end: 20110714
  5. CORTICOSTEROIDS (CORTICOSTEROIDS)(CORTICOSTEROIDS) [Concomitant]
  6. FORMOTEROL (FORMOTEROL) (12 MICROGRAM) (FORMOTEROL) [Concomitant]
  7. SPIRIVA (TIOTROPIUM BROMIDE)(TIOTROPIUM BROMIDE) [Concomitant]
  8. SANASTHMAX (BECLOMETASONE DIPROPIONATE) (SOLUTION) (BECLOMETASONE DIPR [Concomitant]
  9. SALBUTAMOL (SALBUTAMOL)(SALBUTAMOL) [Concomitant]

REACTIONS (6)
  - OFF LABEL USE [None]
  - GASTRITIS [None]
  - DECREASED APPETITE [None]
  - SLEEP DISORDER [None]
  - DIZZINESS [None]
  - NAUSEA [None]
